FAERS Safety Report 15703378 (Version 1)
Quarter: 2018Q4

REPORT INFORMATION
  Report Type: Spontaneous
  Country: US (occurrence: US)
  Receive Date: 20181210
  Receipt Date: 20181210
  Transmission Date: 20190205
  Serious: Yes (Hospitalization)
  Sender: FDA-Public Use
  Company Number: US-DRREDDYS-USA/USA/18/0105939

PATIENT
  Age: 106 Year
  Sex: Female

DRUGS (1)
  1. METOPROLOL SUCCINATE ER TABLETS 25 MG + 50 MG [Suspect]
     Active Substance: METOPROLOL SUCCINATE
     Indication: ATRIAL FIBRILLATION
     Dosage: 25 MG/50 MG
     Route: 048

REACTIONS (4)
  - Body temperature decreased [Unknown]
  - Heart rate increased [Unknown]
  - Shock [Unknown]
  - Heart rate decreased [Unknown]
